FAERS Safety Report 12204430 (Version 1)
Quarter: 2016Q1

REPORT INFORMATION
  Report Type: Spontaneous
  Country: US (occurrence: None)
  Receive Date: 20160322
  Receipt Date: 20160322
  Transmission Date: 20160526
  Serious: Yes (Hospitalization)
  Sender: FDA-Public Use
  Company Number: None

PATIENT
  Age: 64 Year
  Sex: Male
  Weight: 88.7 kg

DRUGS (1)
  1. LENALIDOMIDE (CC-5013) [Suspect]
     Active Substance: LENALIDOMIDE
     Dates: end: 20160228

REACTIONS (4)
  - Leukopenia [None]
  - Human metapneumovirus test positive [None]
  - Pneumonia [None]
  - Sepsis [None]

NARRATIVE: CASE EVENT DATE: 20160319
